FAERS Safety Report 15335232 (Version 2)
Quarter: 2019Q1

REPORT INFORMATION
  Report Type: Report from Study
  Country: CA (occurrence: CA)
  Receive Date: 20180830
  Receipt Date: 20190218
  Transmission Date: 20190417
  Serious: Yes (Other)
  Sender: FDA-Public Use
  Company Number: CA-JNJFOC-20180833367

PATIENT
  Sex: Female

DRUGS (1)
  1. STELARA [Suspect]
     Active Substance: USTEKINUMAB
     Indication: PSORIASIS
     Dosage: STRENGTH = 45 MG
     Route: 058
     Dates: start: 20160902

REACTIONS (5)
  - Arthralgia [Unknown]
  - Tonsillitis [Recovered/Resolved]
  - Multiple sclerosis [Not Recovered/Not Resolved]
  - Psoriasis [Unknown]
  - Polycystic ovaries [Unknown]

NARRATIVE: CASE EVENT DATE: 2018
